FAERS Safety Report 12938570 (Version 4)
Quarter: 2017Q2

REPORT INFORMATION
  Report Type: Report from Study
  Country: BR (occurrence: BR)
  Receive Date: 20161115
  Receipt Date: 20170421
  Transmission Date: 20170830
  Serious: Yes (Hospitalization, Other)
  Sender: FDA-Public Use
  Company Number: PHHY2016BR154808

PATIENT
  Sex: Male
  Weight: 44 kg

DRUGS (2)
  1. SANDOSTATIN LAR DEPOT [Suspect]
     Active Substance: OCTREOTIDE ACETATE
     Indication: NEUROENDOCRINE TUMOUR
  2. SANDOSTATIN LAR DEPOT [Suspect]
     Active Substance: OCTREOTIDE ACETATE
     Indication: PELVIC NEOPLASM
     Dosage: 30 MG, QMO
     Route: 030
     Dates: start: 20161024

REACTIONS (14)
  - Throat cancer [Unknown]
  - Abdominal pain upper [Unknown]
  - Weight decreased [Unknown]
  - Haemorrhage [Unknown]
  - Pulmonary mass [Unknown]
  - Neoplasm [Unknown]
  - Drug ineffective [Unknown]
  - Gastric ulcer [Unknown]
  - Poor peripheral circulation [Unknown]
  - Confusional state [Unknown]
  - Back pain [Unknown]
  - Gastritis [Unknown]
  - Vein disorder [Unknown]
  - Hepatic mass [Unknown]
